FAERS Safety Report 14948124 (Version 2)
Quarter: 2018Q4

REPORT INFORMATION
  Report Type: Spontaneous
  Country: DE (occurrence: DE)
  Receive Date: 20180529
  Receipt Date: 20181018
  Transmission Date: 20190204
  Serious: Yes (Other)
  Sender: FDA-Public Use
  Company Number: DE-PFIZER INC-2018211873

PATIENT
  Sex: Female

DRUGS (2)
  1. NEURONTIN [Suspect]
     Active Substance: GABAPENTIN
     Indication: TOXIC NEUROPATHY
  2. NEURONTIN [Suspect]
     Active Substance: GABAPENTIN
     Indication: POLYNEUROPATHY ALCOHOLIC
     Dates: start: 2015

REACTIONS (9)
  - Post thrombotic syndrome [Unknown]
  - Oedema [Unknown]
  - Affect lability [Unknown]
  - Spinal disorder [Unknown]
  - Incontinence [Unknown]
  - Impaired work ability [Unknown]
  - Back pain [Unknown]
  - Thyroid disorder [Unknown]
  - Deep vein thrombosis [Unknown]
